FAERS Safety Report 4522762-5 (Version None)
Quarter: 2004Q4

REPORT INFORMATION
  Report Type: 
  Country: None (occurrence: None)
  Receive Date: 20041208
  Receipt Date: 20041123
  Transmission Date: 20050328
  Serious: Yes (Disabling)
  Sender: FDA-Public Use
  Company Number: 2004098100

PATIENT
  Age: 72 Year
  Sex: Male
  Weight: 94 kg

DRUGS (5)
  1. NEURONTIN [Suspect]
     Indication: POLYNEUROPATHY
     Dosage: 2400 MG (800 MG, 3 IN 1 D)
     Dates: start: 20040101, end: 20040101
  2. CLOMIPRAMINE HCL [Concomitant]
  3. PYGEUM AFRICANUM (PYGEUM AFRICANUM) [Concomitant]
  4. ALL OTHER THERAPEUTIC PRODUCTS (ALL OTHER THERAPEUTIC PRODUCTS) [Concomitant]
  5. LEVOCARNITINE (LEVOCARNITINE) [Concomitant]

REACTIONS (2)
  - DRUG INEFFECTIVE [None]
  - WEIGHT INCREASED [None]
